FAERS Safety Report 17030523 (Version 1)
Quarter: 2019Q4

REPORT INFORMATION
  Report Type: Spontaneous
  Country: US (occurrence: US)
  Receive Date: 20191114
  Receipt Date: 20191114
  Transmission Date: 20200122
  Serious: No
  Sender: FDA-Public Use
  Company Number: US-ALLERGAN-1932212US

PATIENT
  Age: 84 Year
  Sex: Male

DRUGS (2)
  1. COMBIGAN [Suspect]
     Active Substance: BRIMONIDINE TARTRATE\TIMOLOL MALEATE
     Indication: GLAUCOMA
     Dosage: 1 GTT, BID
     Route: 047
     Dates: start: 201903, end: 201908
  2. GLAUCOMA MED FOR RIGHT EYE [Concomitant]
     Indication: GLAUCOMA

REACTIONS (2)
  - Incorrect dose administered [Unknown]
  - Product container issue [Unknown]
